FAERS Safety Report 18671297 (Version 1)
Quarter: 2020Q4

REPORT INFORMATION
  Report Type: Spontaneous
  Country: US (occurrence: US)
  Receive Date: 20201228
  Receipt Date: 20201228
  Transmission Date: 20210114
  Serious: Yes (Hospitalization)
  Sender: FDA-Public Use
  Company Number: US-PAIPHARMA-2020-US-024735

PATIENT
  Age: 68 Year
  Sex: Male

DRUGS (5)
  1. MEMANTINE. [Concomitant]
     Active Substance: MEMANTINE
  2. MIRTAZAPINE. [Concomitant]
     Active Substance: MIRTAZAPINE
  3. QUETIAPINE. [Concomitant]
     Active Substance: QUETIAPINE
  4. BENZTROPINE. [Concomitant]
     Active Substance: BENZTROPINE
  5. VALPROIC ACID (NON-SPECIFIC) [Suspect]
     Active Substance: VALPROIC ACID
     Indication: PRODUCT USED FOR UNKNOWN INDICATION
     Dosage: 500 MG DAILY

REACTIONS (1)
  - Eosinophilic pleural effusion [Recovered/Resolved]
